FAERS Safety Report 5713334-5 (Version None)
Quarter: 2008Q2

REPORT INFORMATION
  Report Type: 
  Country: None (occurrence: None)
  Receive Date: 20080422
  Receipt Date: 20080415
  Transmission Date: 20081010
  Serious: Yes (Hospitalization)
  Sender: FDA-Public Use
  Company Number: DE-PFIZER INC-2008009224

PATIENT
  Sex: Female
  Weight: 72 kg

DRUGS (4)
  1. ACCUZIDE [Suspect]
     Indication: HYPERTENSION
     Dosage: TEXT:20 MG/12.5MG-FREQ:DAILY
     Route: 048
  2. PIRETANIDE [Suspect]
     Indication: HYPERTENSION
     Route: 048
  3. PHYSIOTENS [Suspect]
     Indication: HYPERTENSION
     Dosage: DAILY DOSE:600MG
     Route: 048
  4. POTASSIUM CHLORIDE [Concomitant]

REACTIONS (6)
  - DYSPEPSIA [None]
  - HELICOBACTER GASTRITIS [None]
  - HEPATIC STEATOSIS [None]
  - HEPATOMEGALY [None]
  - HIATUS HERNIA [None]
  - OEDEMA PERIPHERAL [None]
